FAERS Safety Report 18105050 (Version 1)
Quarter: 2020Q3

REPORT INFORMATION
  Report Type: Spontaneous
  Country: GB (occurrence: GB)
  Receive Date: 20200803
  Receipt Date: 20200803
  Transmission Date: 20201103
  Serious: Yes (Other)
  Sender: FDA-Public Use
  Company Number: GB-BAYER-2020-148751

PATIENT
  Age: 60 Year
  Sex: Female
  Weight: 64 kg

DRUGS (3)
  1. ESTRADIOL. [Suspect]
     Active Substance: ESTRADIOL
     Dosage: 2 DF, OW
     Route: 062
     Dates: start: 202003
  2. ESTRADIOL HEMIHYDRATE (6.5) [Suspect]
     Active Substance: ESTRADIOL HEMIHYDRATE
     Route: 054
     Dates: start: 2015
  3. DERMOVATE [Concomitant]
     Active Substance: CLOBETASOL
     Route: 061

REACTIONS (3)
  - Rash pruritic [Not Recovered/Not Resolved]
  - Myalgia [Not Recovered/Not Resolved]
  - Product prescribing error [Unknown]
